FAERS Safety Report 8908220 (Version 1)
Quarter: 2012Q4

REPORT INFORMATION
  Report Type: 
  Country: FR (occurrence: FR)
  Receive Date: 20121114
  Receipt Date: 20121114
  Transmission Date: 20130627
  Serious: Yes (Other)
  Sender: FDA-Public Use
  Company Number: PHHY2012FR104168

PATIENT
  Age: 57 Year
  Sex: Male

DRUGS (2)
  1. TASIGNA [Suspect]
     Indication: CHRONIC MYELOID LEUKAEMIA
     Dosage: 2 DF, daily
     Route: 048
  2. PEGASYS [Suspect]
     Dosage: 45 ug, QW2
     Route: 058

REACTIONS (6)
  - Heart valve incompetence [Unknown]
  - Mitral valve disease [Unknown]
  - Aortic valve disease [Unknown]
  - Electrocardiogram QT prolonged [Not Recovered/Not Resolved]
  - Electrocardiogram T wave inversion [Unknown]
  - Electrocardiogram ST segment depression [Unknown]
